FAERS Safety Report 19192470 (Version 1)
Quarter: 2021Q2

REPORT INFORMATION
  Report Type: Spontaneous
  Country: DE (occurrence: DE)
  Receive Date: 20210429
  Receipt Date: 20210429
  Transmission Date: 20210717
  Serious: Yes (Hospitalization)
  Sender: FDA-Public Use
  Company Number: DE-ORGANON-O2104DEU001921

PATIENT
  Age: 71 Year
  Sex: Female

DRUGS (19)
  1. ASPIRIN. [Suspect]
     Active Substance: ASPIRIN
     Dosage: 100 MG, 0?1?0?0
     Route: 048
  2. AMLODIPINE [Concomitant]
     Active Substance: AMLODIPINE BESYLATE
     Dosage: 5 MG, 1?0?1?0
     Route: 048
  3. PANTOPRAZOLE [Concomitant]
     Active Substance: PANTOPRAZOLE
     Dosage: 40 MG, 1?0?1?0
     Route: 048
  4. DOMINAL (PROTHIPENDYL HYDROCHLORIDE) [Concomitant]
     Active Substance: PROTHIPENDYL HYDROCHLORIDE
     Dosage: 80 MG, 0?0?0?1
     Route: 048
  5. SPASMOLYT [Concomitant]
     Active Substance: TROSPIUM CHLORIDE
     Dosage: 15 MG, 1?0?0?1
     Route: 048
  6. MIRTAZAPINE. [Suspect]
     Active Substance: MIRTAZAPINE
     Dosage: 15 MG, 0?0?0.5?0
     Route: 048
  7. ATORVASTATIN [Concomitant]
     Active Substance: ATORVASTATIN
     Dosage: 40 MG, 0?0?1?0
     Route: 048
  8. RISPERIDON [Concomitant]
     Active Substance: RISPERIDONE
     Dosage: 0.5 MG, 1?0?1?0
     Route: 048
  9. LANTUS [Concomitant]
     Active Substance: INSULIN GLARGINE
     Dosage: 14 INTERNATIONAL UNIT, 0?0?1?0, SOLUTION FOR INJECTION / INFUSION, LANTUS100UNITS / ML SOLOSTAR 3ML
     Route: 058
  10. METOCLOPRAMIDE HYDROCHLORIDE. [Concomitant]
     Active Substance: METOCLOPRAMIDE HYDROCHLORIDE
     Dosage: 10 MG, 1?1?1?0
     Route: 048
  11. EBRANTIL [URAPIDIL] [Concomitant]
     Active Substance: URAPIDIL
     Dosage: 90 MG, 1?0?1?0
     Route: 048
  12. BISOPROLOL [Concomitant]
     Active Substance: BISOPROLOL
     Dosage: 2.5 MG, 1?0?1?0
     Route: 048
  13. CITALOPRAM [Suspect]
     Active Substance: CITALOPRAM HYDROBROMIDE
     Dosage: 10 MG, 1?0?0?0
     Route: 048
  14. SPIRONOLACTON [Suspect]
     Active Substance: SPIRONOLACTONE
     Dosage: 12.5 MG, 0?1?0?0
     Route: 048
  15. URO?TABLINEN [Concomitant]
     Active Substance: NITROFURANTOIN
     Dosage: 0?0?1?0
     Route: 048
  16. MOXONIDIN [Concomitant]
     Active Substance: MOXONIDINE
     Dosage: 0.3 MG, 1?0?1?0
     Route: 048
  17. BACLOFEN. [Concomitant]
     Active Substance: BACLOFEN
     Dosage: 10 MG, 0.5?0?0.5?0
     Route: 048
  18. RAMIPRIL. [Concomitant]
     Active Substance: RAMIPRIL
     Dosage: 5 MG, 1?0?0?1
     Route: 048
  19. FUROSEMIDE. [Suspect]
     Active Substance: FUROSEMIDE
     Dosage: 40 MG, 2?1?0?0
     Route: 048

REACTIONS (4)
  - Labelled drug-drug interaction medication error [Unknown]
  - Haematemesis [Unknown]
  - Renal impairment [Unknown]
  - General physical health deterioration [Unknown]
